FAERS Safety Report 5183688-X (Version None)
Quarter: 2006Q4

REPORT INFORMATION
  Report Type: 
  Country: None (occurrence: None)
  Receive Date: 20061220
  Receipt Date: 20060130
  Transmission Date: 20070319
  Serious: No
  Sender: FDA-Public Use
  Company Number: US-GLAXOSMITHKLINE-A0591414A

PATIENT
  Age: 52 Year
  Sex: Female

DRUGS (1)
  1. EQUATE NTS 21MG [Suspect]

REACTIONS (3)
  - NONSPECIFIC REACTION [None]
  - RASH [None]
  - SKIN EXFOLIATION [None]
